FAERS Safety Report 16171952 (Version 1)
Quarter: 2019Q2

REPORT INFORMATION
  Report Type: Spontaneous
  Country: PL (occurrence: PL)
  Receive Date: 20190409
  Receipt Date: 20190409
  Transmission Date: 20190711
  Serious: Yes (Hospitalization, Other)
  Sender: FDA-Public Use
  Company Number: PL-AUROBINDO-AUR-APL-2019-018000

PATIENT

DRUGS (2)
  1. MICROGYNON [Suspect]
     Active Substance: ETHINYL ESTRADIOL\LEVONORGESTREL ACETATE
     Indication: CHEMICAL CONTRACEPTION
     Dosage: DOSE: 1 TABLET
     Route: 048
     Dates: start: 201604, end: 20160609
  2. PARACETAMOL TABLET [Suspect]
     Active Substance: ACETAMINOPHEN
     Indication: PYREXIA
     Dosage: DOSE: UP TO FEW TABLETS/24H; IMMEDIATE USE
     Route: 048
     Dates: start: 20160610, end: 20160614

REACTIONS (3)
  - Bacterial infection [Recovering/Resolving]
  - Pyrexia [Recovering/Resolving]
  - Liver injury [Recovering/Resolving]

NARRATIVE: CASE EVENT DATE: 20160610
